FAERS Safety Report 18077147 (Version 1)
Quarter: 2020Q3

REPORT INFORMATION
  Report Type: Spontaneous
  Country: ES (occurrence: ES)
  Receive Date: 20200728
  Receipt Date: 20200728
  Transmission Date: 20201103
  Serious: Yes (Other)
  Sender: FDA-Public Use
  Company Number: ES-LUPIN PHARMACEUTICALS INC.-2020-03922

PATIENT
  Age: 68 Year
  Sex: Male

DRUGS (7)
  1. METHYLPREDNISOLONE. [Suspect]
     Active Substance: METHYLPREDNISOLONE
     Indication: COVID-19 PNEUMONIA
     Dosage: 40 MILLIGRAM, QD
     Route: 042
  2. INTERFERON BETA NOS [Concomitant]
     Active Substance: INTERFERON BETA
     Indication: COVID-19 PNEUMONIA
     Dosage: 8MU,  EVERY 24 HOURS
     Route: 065
  3. HYDROXYCHLOROQUINE [Suspect]
     Active Substance: HYDROXYCHLOROQUINE
     Indication: COVID-19 PNEUMONIA
     Dosage: 400 MILLIGRAM, QD
     Route: 065
  4. AZITHROMYCIN ANHYDROUS. [Suspect]
     Active Substance: AZITHROMYCIN ANHYDROUS
     Indication: COVID-19 PNEUMONIA
     Dosage: 250 MILLIGRAM, QD
     Route: 065
  5. QUETIAPINE. [Concomitant]
     Active Substance: QUETIAPINE
     Indication: DEPRESSION
     Dosage: 200 MILLIGRAM, QD (INTERRUPTED)
     Route: 065
  6. LOPINAVIR + RITONAVIR [Concomitant]
     Active Substance: LOPINAVIR\RITONAVIR
     Indication: COVID-19 PNEUMONIA
     Dosage: 400/100 MG, BID (DISCONTINUED)
     Route: 065
  7. QUETIAPINE. [Concomitant]
     Active Substance: QUETIAPINE
     Indication: PARANOID PERSONALITY DISORDER
     Dosage: 200 MILLIGRAM, QD (GRADUALLY REINSTATED)
     Route: 065

REACTIONS (1)
  - Off label use [Unknown]
